FAERS Safety Report 7450726-0 (Version None)
Quarter: 2011Q2

REPORT INFORMATION
  Report Type: 
  Country: None (occurrence: None)
  Receive Date: 20110502
  Receipt Date: 20110421
  Transmission Date: 20111010
  Serious: Yes (Other)
  Sender: FDA-Public Use
  Company Number: TR-SANOFI-AVENTIS-2011SA025515

PATIENT
  Age: 62 Year
  Sex: Female

DRUGS (5)
  1. ATENOLOL/CHLORTALIDONE [Concomitant]
     Dosage: 50 MG ATENOLOL + 12.5 MG CHLORTHALIDONE
     Route: 048
  2. CANDESARTAN CILEXETIL/HYDROCHLOROTHIAZIDE [Concomitant]
     Dosage: 16 MG CANDESARTAN CILEXETIL + 12.5 MG HCTZ
     Route: 048
  3. EUTHYROX [Concomitant]
     Route: 048
  4. INSULIN GLARGINE [Suspect]
     Route: 058
  5. MOXONIDINE [Concomitant]
     Route: 048

REACTIONS (2)
  - HYPOGLYCAEMIA [None]
  - LUNG INFECTION [None]
